FAERS Safety Report 4775640-0 (Version None)
Quarter: 2005Q3

REPORT INFORMATION
  Report Type: 
  Country: None (occurrence: None)
  Receive Date: 20050920
  Receipt Date: 20050901
  Transmission Date: 20060218
  Serious: Yes (Other)
  Sender: FDA-Public Use
  Company Number: DSA_70702_2005

PATIENT
  Age: 35 Year
  Sex: Female
  Weight: 59.4212 kg

DRUGS (8)
  1. AZASAN [Suspect]
     Dosage: DF
     Dates: start: 20050818
  2. REMICADE [Suspect]
     Indication: CROHN'S DISEASE
     Dosage: DF IV
     Route: 042
     Dates: start: 20050818
  3. PREDNISONE [Concomitant]
  4. IRON [Concomitant]
  5. DIPHENOXYLATE W/ATROPINE SULFATE [Concomitant]
  6. ESOMEPRAZOLE [Concomitant]
  7. PHENERGAN [Concomitant]
  8. 5-ASA/MESALAZINE [Concomitant]

REACTIONS (3)
  - HEART RATE DECREASED [None]
  - HEART RATE INCREASED [None]
  - OEDEMA PERIPHERAL [None]
